FAERS Safety Report 9395440 (Version 1)
Quarter: 2013Q3

REPORT INFORMATION
  Report Type: Spontaneous
  Country: US (occurrence: US)
  Receive Date: 20130711
  Receipt Date: 20130711
  Transmission Date: 20140515
  Serious: No
  Sender: FDA-Public Use
  Company Number: US-ASTELLAS-2013US004385

PATIENT
  Age: 86 Year
  Sex: Female

DRUGS (2)
  1. MYRBETRIQ [Suspect]
     Indication: PRODUCT USED FOR UNKNOWN INDICATION
     Dosage: 25 MG, UID/QD
     Route: 048
     Dates: start: 2013
  2. FIORINAL                           /01137701/ [Concomitant]
     Indication: HEADACHE
     Dosage: UNK
     Route: 065

REACTIONS (1)
  - Headache [Unknown]
